FAERS Safety Report 8448127-1 (Version None)
Quarter: 2012Q2

REPORT INFORMATION
  Report Type: 
  Country: None (occurrence: None)
  Receive Date: 20120619
  Receipt Date: 20120612
  Transmission Date: 20120825
  Serious: Yes (Death, Hospitalization)
  Sender: FDA-Public Use
  Company Number: US-CELGENEUS-163-21880-12041424

PATIENT
  Sex: Male

DRUGS (19)
  1. COREG [Concomitant]
     Dosage: 1
     Route: 048
     Dates: start: 20101001
  2. VITAMIN B COMPLEX CAP [Concomitant]
     Dosage: 1
     Route: 065
     Dates: start: 20101001
  3. MEGA MULTIVITAMINS [Concomitant]
     Dosage: 1
     Route: 048
     Dates: start: 20101105
  4. OMEGA FISH OIL [Concomitant]
     Dosage: 1
     Route: 065
     Dates: start: 20101001
  5. AMBIEN [Concomitant]
     Dosage: 10 MILLIGRAM
     Route: 048
     Dates: start: 20100101
  6. RANITIDINE [Concomitant]
     Dosage: 75
     Route: 065
     Dates: start: 20120101
  7. NITROGLYCERIN [Concomitant]
     Dosage: .4 MILLIGRAM
     Route: 065
     Dates: start: 20101001
  8. ASCORBIC ACID [Concomitant]
     Dosage: 1000 MILLIGRAM
     Route: 065
     Dates: start: 20100101
  9. KLOR-CON [Concomitant]
     Dosage: 1
     Route: 065
     Dates: start: 20101001
  10. VICODIN [Concomitant]
     Dosage: 5-500MG
     Route: 048
     Dates: start: 20101001
  11. IMDUR [Concomitant]
     Dosage: 1
     Route: 048
     Dates: start: 20120104
  12. LIPITOR [Concomitant]
     Dosage: 1
     Route: 048
     Dates: start: 20101001
  13. REVLIMID [Suspect]
     Indication: B-CELL LYMPHOMA
     Dosage: 5 MILLIGRAM
     Route: 048
     Dates: start: 20120220, end: 20120313
  14. FUROSEMIDE [Concomitant]
     Dosage: 1
     Route: 048
     Dates: start: 20101001
  15. VITAMIN D3 MULTIPLE VITAMINS-MINERALS [Concomitant]
     Dosage: 1
     Route: 048
     Dates: start: 20111117
  16. ACETAMINOPHEN [Concomitant]
     Dosage: 500 MILLIGRAM
     Route: 048
     Dates: start: 20110101
  17. ENALAPRIL MALEATE [Concomitant]
     Dosage: 1
     Route: 048
     Dates: start: 20111201
  18. LANTUS [Concomitant]
     Route: 065
     Dates: start: 20100101
  19. NOVOLOG [Concomitant]
     Route: 058
     Dates: start: 20100101

REACTIONS (3)
  - MYOCARDIAL INFARCTION [None]
  - PLATELET COUNT DECREASED [None]
  - SUDDEN DEATH [None]
